FAERS Safety Report 11803787 (Version 2)
Quarter: 2016Q2

REPORT INFORMATION
  Report Type: Report from Study
  Country: US (occurrence: US)
  Receive Date: 20151204
  Receipt Date: 20160602
  Transmission Date: 20160815
  Serious: Yes (Death, Hospitalization)
  Sender: FDA-Public Use
  Company Number: PHEH2015US025128

PATIENT
  Age: 69 Year
  Sex: Female

DRUGS (1)
  1. VOTRIENT [Suspect]
     Active Substance: PAZOPANIB HYDROCHLORIDE
     Indication: RENAL CANCER
     Dosage: 200 MG, QID (FOUR TIMES A DAY)
     Route: 048

REACTIONS (2)
  - Death [Fatal]
  - Diarrhoea [Recovering/Resolving]

NARRATIVE: CASE EVENT DATE: 20151026
